FAERS Safety Report 25872384 (Version 1)
Quarter: 2025Q4

REPORT INFORMATION
  Report Type: Spontaneous
  Country: US (occurrence: US)
  Receive Date: 20251002
  Receipt Date: 20251002
  Transmission Date: 20260117
  Serious: Yes (Hospitalization)
  Sender: ZYDUS PHARM
  Company Number: US-CADILA HEALTHCARE LIMITED-US-ZYDUS-129058

PATIENT

DRUGS (1)
  1. LENALIDOMIDE [Suspect]
     Active Substance: LENALIDOMIDE
     Indication: Plasma cell myeloma
     Dosage: 10 MILLIGRAM, QD
     Route: 048
     Dates: start: 20250813

REACTIONS (5)
  - Fall [Recovered/Resolved]
  - Peripheral swelling [Unknown]
  - Tenderness [Unknown]
  - Muscular weakness [Unknown]
  - Dysstasia [Unknown]

NARRATIVE: CASE EVENT DATE: 20250101
